FAERS Safety Report 4511027-3 (Version None)
Quarter: 2004Q4

REPORT INFORMATION
  Report Type: 
  Country: None (occurrence: None)
  Receive Date: 20041018
  Receipt Date: 20040706
  Transmission Date: 20050328
  Serious: No
  Sender: FDA-Public Use
  Company Number: 207681

PATIENT
  Age: 43 Year
  Sex: Female

DRUGS (9)
  1. XOLAIR [Suspect]
     Indication: ASTHMA
     Dosage: 150 MG, Q4W, SUBCUTANEOUS
     Route: 058
     Dates: start: 20030917
  2. ALLEGRA [Concomitant]
  3. PULMICORT [Concomitant]
  4. SINGULAIR [Concomitant]
  5. FORADIL [Concomitant]
  6. THEO-DUR [Concomitant]
  7. ATROVENT [Concomitant]
  8. ALBUTEROL (ALBUTEROL, ALBUTEROL SULFATE) [Concomitant]
  9. PATANOL [Concomitant]

REACTIONS (2)
  - ASTHMA [None]
  - LARYNGEAL OEDEMA [None]
